FAERS Safety Report 9563686 (Version 1)
Quarter: 2013Q3

REPORT INFORMATION
  Report Type: Spontaneous
  Country: US (occurrence: None)
  Receive Date: 20130926
  Receipt Date: 20130926
  Transmission Date: 20140515
  Serious: Yes (Other)
  Sender: FDA-Public Use
  Company Number: None

PATIENT
  Age: 65 Year
  Sex: Female
  Weight: 46.78 kg

DRUGS (1)
  1. WARFARIN [Suspect]
     Indication: ATRIAL FIBRILLATION
     Dosage: 5 - 10 MG DEPENDING ON INR
     Route: 048
     Dates: start: 20130120

REACTIONS (3)
  - International normalised ratio increased [None]
  - Chest pain [None]
  - Palpitations [None]
